FAERS Safety Report 7940869-7 (Version None)
Quarter: 2011Q4

REPORT INFORMATION
  Report Type: 
  Country: None (occurrence: None)
  Receive Date: 20111114
  Receipt Date: 20110714
  Transmission Date: 20120403
  Serious: Yes (Hospitalization, Other)
  Sender: FDA-Public Use
  Company Number: 1000017662

PATIENT
  Age: 37 Year
  Sex: Female
  Weight: 48.99 kg

DRUGS (5)
  1. SAVELLA [Suspect]
     Indication: FIBROMYALGIA
     Dosage: SEE IMAGE
     Route: 048
     Dates: start: 20100930, end: 20101001
  2. SAVELLA [Suspect]
     Indication: FIBROMYALGIA
     Dosage: SEE IMAGE
     Route: 048
     Dates: start: 20100929, end: 20100929
  3. SAVELLA [Suspect]
     Indication: FIBROMYALGIA
     Dosage: SEE IMAGE
     Route: 048
     Dates: start: 20101002, end: 20101005
  4. YAZ (DROSPIRENONE, ETHINYL ESTRADIOL) (DROSPIRENONE, ETHINYL ESTRADIOL [Concomitant]
  5. SAVELLA [Suspect]
     Indication: FIBROMYALGIA
     Dosage: 100 MG (50 MG,2 IN 1 D),ORAL
     Route: 048
     Dates: start: 20101006, end: 20101012

REACTIONS (6)
  - WITHDRAWAL SYNDROME [None]
  - PARAESTHESIA [None]
  - ANXIETY [None]
  - HYPOAESTHESIA [None]
  - BLOOD PRESSURE INCREASED [None]
  - HEART RATE INCREASED [None]
